FAERS Safety Report 16836285 (Version 1)
Quarter: 2019Q3

REPORT INFORMATION
  Report Type: Report from Study
  Country: US (occurrence: US)
  Receive Date: 20190921
  Receipt Date: 20190921
  Transmission Date: 20191005
  Serious: Yes (Other)
  Sender: FDA-Public Use
  Company Number: US-CPL-001244

PATIENT
  Age: 58 Year
  Sex: Male

DRUGS (1)
  1. HYDRALAZINE/HYDRALAZINE HYDROCHLORIDE [Suspect]
     Active Substance: HYDRALAZINE HYDROCHLORIDE
     Indication: PRODUCT USED FOR UNKNOWN INDICATION
     Dosage: TID, HYDRALAZINE EXPOSURE DURATION MORE THAN 12 MONTHS

REACTIONS (1)
  - Lupus-like syndrome [Unknown]
